FAERS Safety Report 5318730-6 (Version None)
Quarter: 2007Q2

REPORT INFORMATION
  Report Type: 
  Country: None (occurrence: None)
  Receive Date: 20070503
  Receipt Date: 20070425
  Transmission Date: 20071010
  Serious: Yes (Hospitalization)
  Sender: FDA-Public Use
  Company Number: 2007-02047

PATIENT
  Age: 42 Year
  Sex: Male

DRUGS (4)
  1. METRONIDAZOLE [Suspect]
     Indication: HELICOBACTER INFECTION
     Dosage: 400 MG
     Dates: start: 20040701, end: 20041001
  2. LANSOPRAZOLE [Concomitant]
  3. AMOXICILLIN [Concomitant]
  4. CLARITHROMYCIN [Concomitant]

REACTIONS (1)
  - MENINGITIS ASEPTIC [None]
